FAERS Safety Report 6032564-9 (Version None)
Quarter: 2009Q1

REPORT INFORMATION
  Report Type: 
  Country: None (occurrence: None)
  Receive Date: 20090109
  Receipt Date: 20081216
  Transmission Date: 20090719
  Serious: Yes (Hospitalization)
  Sender: FDA-Public Use
  Company Number: FR-AVENTIS-200814500FR

PATIENT
  Age: 84 Year
  Sex: Female

DRUGS (10)
  1. LASIX [Suspect]
     Route: 048
     Dates: start: 20080901, end: 20081030
  2. ZOMETA [Suspect]
     Indication: METASTASES TO BONE
     Route: 042
     Dates: start: 20080101, end: 20080928
  3. CAPECITABINE [Suspect]
     Route: 048
     Dates: start: 20080101, end: 20081030
  4. AMLODIPINE [Suspect]
     Dates: start: 20081001
  5. TANAKAN                            /01003103/ [Concomitant]
     Indication: SENSORY LOSS
     Route: 048
  6. LIPANTHYL [Concomitant]
     Route: 048
     Dates: start: 19980101, end: 20081030
  7. DOLIPRANE [Concomitant]
     Indication: PAIN
     Route: 048
     Dates: start: 19980101, end: 20081030
  8. DOMPERIDONE [Concomitant]
     Indication: DRUG USE FOR UNKNOWN INDICATION
     Route: 048
     Dates: start: 19980101, end: 20081030
  9. MOPRAL [Concomitant]
     Indication: DRUG USE FOR UNKNOWN INDICATION
     Route: 048
     Dates: start: 19980101
  10. NOCTRAN [Concomitant]
     Indication: DRUG USE FOR UNKNOWN INDICATION

REACTIONS (1)
  - RENAL FAILURE [None]
